FAERS Safety Report 8259344-8 (Version None)
Quarter: 2012Q1

REPORT INFORMATION
  Report Type: 
  Country: None (occurrence: None)
  Receive Date: 20120327
  Receipt Date: 20080915
  Transmission Date: 20120608
  Serious: Yes (Other)
  Sender: FDA-Public Use
  Company Number: PHEH2008US08235

PATIENT
  Age: 46 Year
  Sex: Male

DRUGS (3)
  1. DILANTIN [Suspect]
     Dosage: 300 MG, QD, ORAL
     Route: 048
     Dates: start: 20080913
  2. GLEEVEC [Suspect]
     Dosage: 800 MG, QD
     Dates: start: 20080915
  3. GLEEVEC [Suspect]
     Dosage: 800 MG, QD
     Dates: end: 20080914

REACTIONS (2)
  - DRUG INTERACTION [None]
  - WHITE BLOOD CELL COUNT INCREASED [None]
